FAERS Safety Report 7557145-7 (Version None)
Quarter: 2011Q2

REPORT INFORMATION
  Report Type: 
  Country: None (occurrence: None)
  Receive Date: 20110620
  Receipt Date: 20110608
  Transmission Date: 20111010
  Serious: Yes (Hospitalization, Other)
  Sender: FDA-Public Use
  Company Number: US-ROCHE-743191

PATIENT
  Sex: Male
  Weight: 88.5 kg

DRUGS (1)
  1. ACCUTANE [Suspect]
     Dosage: DOSE: 20 MG - 80 MG DAILY
     Route: 065
     Dates: start: 20010130, end: 20010620

REACTIONS (7)
  - DRY SKIN [None]
  - ANAL FISTULA [None]
  - DEPRESSION [None]
  - CROHN'S DISEASE [None]
  - GASTROINTESTINAL INJURY [None]
  - INFLAMMATORY BOWEL DISEASE [None]
  - LIP DRY [None]
